FAERS Safety Report 7342812-0 (Version None)
Quarter: 2011Q1

REPORT INFORMATION
  Report Type: 
  Country: None (occurrence: None)
  Receive Date: 20110310
  Receipt Date: 20100909
  Transmission Date: 20110831
  Serious: Yes (Hospitalization, Other)
  Sender: FDA-Public Use
  Company Number: US-BAYER-200939676NA

PATIENT
  Sex: Female
  Weight: 83.9 kg

DRUGS (13)
  1. YASMIN [Suspect]
     Indication: ORAL CONTRACEPTION
     Dosage: UNK
     Dates: start: 20020101, end: 20080801
  2. YASMIN [Suspect]
     Indication: MENSTRUATION IRREGULAR
  3. TERCONAZOLE [Concomitant]
     Dosage: UNK
     Route: 048
     Dates: start: 20060714
  4. CEPHALEXIN [Concomitant]
     Dosage: 500 MG, UNK
     Route: 048
     Dates: start: 20070402
  5. CIPROFLOXACIN HYDROCHLORIDE [Concomitant]
     Dosage: UNK UNK, QD
     Route: 048
     Dates: start: 20071126
  6. AZITHROMYCIN [Concomitant]
     Dosage: 500 MG, UNK
     Route: 048
     Dates: start: 20061018
  7. YAZ [Suspect]
     Indication: ORAL CONTRACEPTION
     Dosage: UNK
     Dates: start: 20020101, end: 20080801
  8. YAZ [Suspect]
     Indication: MENSTRUATION IRREGULAR
  9. YAZ [Suspect]
     Indication: DYSMENORRHOEA
  10. UNCODEABLE ^UNCLASSIFIABLE^ [Concomitant]
     Dosage: 50 MG, UNK
     Route: 048
     Dates: start: 20060117
  11. ZYRTEC-D 12 HOUR [Concomitant]
     Dosage: UNK UNK, QD
     Route: 048
     Dates: start: 20070612
  12. YASMIN [Suspect]
     Indication: DYSMENORRHOEA
  13. DIETHYLPROPION [Concomitant]
     Dosage: 75 MG, UNK
     Route: 048
     Dates: start: 20051118

REACTIONS (10)
  - VOMITING [None]
  - CHEST PAIN [None]
  - ABDOMINAL PAIN [None]
  - CHOLELITHIASIS [None]
  - DYSPNOEA [None]
  - NAUSEA [None]
  - CHOLECYSTITIS CHRONIC [None]
  - PULMONARY EMBOLISM [None]
  - ABDOMINAL DISTENSION [None]
  - ABDOMINAL TENDERNESS [None]
